FAERS Safety Report 4642926-X (Version None)
Quarter: 2005Q2

REPORT INFORMATION
  Report Type: 
  Country: None (occurrence: None)
  Receive Date: 20050421
  Receipt Date: 20050411
  Transmission Date: 20051028
  Serious: No
  Sender: FDA-Public Use
  Company Number: 05P-167-0297116-00

PATIENT
  Age: 34 Year
  Sex: Female
  Weight: 134 kg

DRUGS (1)
  1. MERIDIA [Suspect]
     Indication: OBESITY
     Dosage: 15 MG, PER ORAL
     Route: 048
     Dates: start: 20050204, end: 20050301

REACTIONS (2)
  - DEPRESSION [None]
  - IRRITABILITY [None]
